FAERS Safety Report 18213121 (Version 1)
Quarter: 2020Q3

REPORT INFORMATION
  Report Type: Spontaneous
  Country: CA (occurrence: CA)
  Receive Date: 20200831
  Receipt Date: 20200831
  Transmission Date: 20201103
  Serious: Yes (Life-Threatening, Hospitalization)
  Sender: FDA-Public Use
  Company Number: CA-JNJFOC-20200838571

PATIENT
  Age: 62 Year
  Sex: Male

DRUGS (3)
  1. YERVOY [Concomitant]
     Active Substance: IPILIMUMAB
  2. NIVOLUMAB [Concomitant]
     Active Substance: NIVOLUMAB
  3. RIVAROXABAN [Suspect]
     Active Substance: RIVAROXABAN
     Indication: PRODUCT USED FOR UNKNOWN INDICATION
     Dosage: UNK
     Route: 048

REACTIONS (3)
  - Haematuria [Unknown]
  - Bladder irrigation [Unknown]
  - Therapy change [Unknown]
